FAERS Safety Report 4688862-4 (Version None)
Quarter: 2005Q2

REPORT INFORMATION
  Report Type: 
  Country: None (occurrence: None)
  Receive Date: 20050610
  Receipt Date: 20050601
  Transmission Date: 20051028
  Serious: Yes (Hospitalization)
  Sender: FDA-Public Use
  Company Number: MK200506-0033-1

PATIENT
  Age: 52 Year
  Sex: Male

DRUGS (1)
  1. NALTREXONE HCL [Suspect]
     Indication: ALCOHOLISM

REACTIONS (3)
  - BACK PAIN [None]
  - PAIN [None]
  - THERAPY NON-RESPONDER [None]
